FAERS Safety Report 8565082-4 (Version None)
Quarter: 2012Q3

REPORT INFORMATION
  Report Type: 
  Country: None (occurrence: None)
  Receive Date: 20120803
  Receipt Date: 20120802
  Transmission Date: 20120928
  Serious: Yes (Hospitalization)
  Sender: FDA-Public Use
  Company Number: IT-BAYER-2012-078420

PATIENT
  Age: 80 Year
  Sex: Male

DRUGS (4)
  1. BISOPROLOL FUMARATE [Concomitant]
     Dosage: DAILY DOSE 1.25 MG
  2. LOSARTAN POTASSIUM [Concomitant]
     Dosage: DAILY DOSE 100 MG
  3. FUROSEMIDE [Concomitant]
     Dosage: DAILY DOSE 1 DF
  4. ASPIRIN [Suspect]
     Indication: MYOCARDIAL ISCHAEMIA
     Dosage: 100 MG, QD
     Route: 048
     Dates: start: 20120515, end: 20120613

REACTIONS (2)
  - SHOCK HAEMORRHAGIC [None]
  - DUODENAL ULCER HAEMORRHAGE [None]
